FAERS Safety Report 11699368 (Version 5)
Quarter: 2015Q4

REPORT INFORMATION
  Report Type: Spontaneous
  Country: CA (occurrence: CA)
  Receive Date: 20151104
  Receipt Date: 20151229
  Transmission Date: 20160304
  Serious: Yes (Other)
  Sender: FDA-Public Use
  Company Number: CA-JNJFOC-20151017267

PATIENT
  Sex: Female
  Weight: 52.16 kg

DRUGS (5)
  1. IRON [Concomitant]
     Active Substance: IRON
     Indication: ANAEMIA
     Dosage: INTERVAL: ABOUT 2 MONTHS
     Route: 065
     Dates: start: 2001
  2. WARFARIN [Concomitant]
     Active Substance: WARFARIN
     Indication: THROMBOSIS PROPHYLAXIS
     Dosage: 300 UNITS ABOUT 3 MONTHS
     Route: 065
     Dates: start: 2001
  3. TYLENOL REGULAR STRENGTH [Suspect]
     Active Substance: ACETAMINOPHEN
     Indication: BACK PAIN
     Dosage: STARTED IN 1970^S 2 CAPLETS EVERY 6 HOURS AS NEEDED.SHE WAS TAKING PARACETAMOL:1980-1997
     Route: 048
  4. TYLENOL REGULAR STRENGTH [Suspect]
     Active Substance: ACETAMINOPHEN
     Indication: BACK PAIN
     Dosage: AT MOST ONCE A WEEK
     Route: 048
     Dates: start: 200103, end: 200105
  5. TYLENOL REGULAR STRENGTH [Suspect]
     Active Substance: ACETAMINOPHEN
     Indication: BACK PAIN
     Dosage: 1 DOSE ONLY IN 2005, SEVERAL WEEKS APART. SHE WAS TAKING PARACETAMOL: 2004-2006
     Route: 048
     Dates: start: 2005, end: 2005

REACTIONS (3)
  - Drug hypersensitivity [Unknown]
  - Haemorrhage [Recovered/Resolved]
  - Menorrhagia [Recovered/Resolved]
